FAERS Safety Report 6072260-5 (Version None)
Quarter: 2009Q1

REPORT INFORMATION
  Report Type: 
  Country: None (occurrence: None)
  Receive Date: 20090206
  Receipt Date: 20090206
  Transmission Date: 20090719
  Serious: Yes (Other)
  Sender: FDA-Public Use
  Company Number: None

PATIENT
  Age: 42 Year
  Sex: Female
  Weight: 77.1115 kg

DRUGS (3)
  1. DEPAKOTE [Suspect]
     Indication: DEPRESSION
     Dosage: ONE TABLET TWICE DAILY PO
     Route: 048
     Dates: start: 20080714, end: 20080725
  2. DEPAKOTE [Suspect]
     Indication: NEUROPATHY PERIPHERAL
     Dosage: ONE TABLET TWICE DAILY PO
     Route: 048
     Dates: start: 20080714, end: 20080725
  3. DEPAKOTE [Suspect]
     Indication: PAIN
     Dosage: ONE TABLET TWICE DAILY PO
     Route: 048
     Dates: start: 20080714, end: 20080725

REACTIONS (20)
  - ABDOMINAL DISCOMFORT [None]
  - ABDOMINAL DISTENSION [None]
  - ABDOMINAL PAIN [None]
  - CRYING [None]
  - DEPRESSION [None]
  - DRUG INEFFECTIVE [None]
  - DYSPNOEA [None]
  - HAEMORRHAGE [None]
  - HAIR GROWTH ABNORMAL [None]
  - HEART RATE INCREASED [None]
  - HEART RATE IRREGULAR [None]
  - MOOD SWINGS [None]
  - PAIN OF SKIN [None]
  - PRURITUS [None]
  - RESPIRATORY DISTRESS [None]
  - SCAR [None]
  - SKIN DISORDER [None]
  - SKIN ULCER [None]
  - URTICARIA [None]
  - WEIGHT INCREASED [None]
